FAERS Safety Report 6718406-4 (Version None)
Quarter: 2010Q2

REPORT INFORMATION
  Report Type: 
  Country: None (occurrence: None)
  Receive Date: 20100510
  Receipt Date: 20100426
  Transmission Date: 20101027
  Serious: Yes (Life-Threatening, Hospitalization)
  Sender: FDA-Public Use
  Company Number: US-MYLANLABS-2010S1007146

PATIENT
  Age: 24 Year
  Sex: Female

DRUGS (2)
  1. DIAZEPAM [Suspect]
     Indication: INTENTIONAL OVERDOSE
     Dosage: ABOUT 10 PILLS
     Route: 048
  2. ETHYLENE GLYCOL [Suspect]
     Indication: INTENTIONAL OVERDOSE
     Dosage: 1 BOTTLE
     Route: 048

REACTIONS (4)
  - BRAIN DEATH [None]
  - COMA [None]
  - INTENTIONAL OVERDOSE [None]
  - RENAL FAILURE ACUTE [None]
